FAERS Safety Report 8500892-0 (Version None)
Quarter: 2012Q3

REPORT INFORMATION
  Report Type: 
  Country: None (occurrence: None)
  Receive Date: 20120710
  Receipt Date: 20120703
  Transmission Date: 20120928
  Serious: Yes (Death)
  Sender: FDA-Public Use
  Company Number: PHHY2012FR058308

PATIENT
  Age: 83 Year
  Sex: Male

DRUGS (3)
  1. AMIODARONE HCL [Concomitant]
     Indication: CARDIAC FAILURE
  2. DIURETICS [Concomitant]
     Indication: CARDIAC FAILURE
  3. OSLIF BREEZHALER [Suspect]
     Indication: CHRONIC OBSTRUCTIVE PULMONARY DISEASE
     Dosage: 150 UG, QD
     Route: 055
     Dates: start: 20120514

REACTIONS (1)
  - CARDIAC FAILURE [None]
